FAERS Safety Report 15269636 (Version 1)
Quarter: 2018Q3

REPORT INFORMATION
  Report Type: Spontaneous
  Country: US (occurrence: US)
  Receive Date: 20180813
  Receipt Date: 20180813
  Transmission Date: 20181010
  Serious: Yes (Life-Threatening, Hospitalization, Other)
  Sender: FDA-Public Use
  Company Number: US-ORION CORPORATION ORION PHARMA-18_00004157

PATIENT
  Age: 58 Year
  Sex: Female

DRUGS (1)
  1. METHOTREXATE. [Suspect]
     Active Substance: METHOTREXATE
     Indication: RHEUMATOID ARTHRITIS
     Route: 048

REACTIONS (9)
  - Pneumonitis [Recovering/Resolving]
  - Hypercalcaemia [Recovered/Resolved]
  - Pulmonary toxicity [Recovering/Resolving]
  - White blood cell count increased [Unknown]
  - Acute kidney injury [Unknown]
  - Bone marrow failure [Unknown]
  - Blood 1,25-dihydroxycholecalciferol increased [Recovered/Resolved]
  - Respiratory failure [Recovering/Resolving]
  - Normocytic anaemia [Unknown]
